FAERS Safety Report 24990123 (Version 1)
Quarter: 2025Q1

REPORT INFORMATION
  Report Type: Spontaneous
  Country: US (occurrence: US)
  Receive Date: 20250220
  Receipt Date: 20250220
  Transmission Date: 20250408
  Serious: Yes (Other)
  Sender: BAYER HEALTHCARE LLC
  Company Number: US-BAYER-2025A021748

PATIENT
  Sex: Male

DRUGS (1)
  1. ASTEPRO [Suspect]
     Active Substance: AZELASTINE HYDROCHLORIDE

REACTIONS (5)
  - Atrial fibrillation [None]
  - Tracheal stenosis [None]
  - Deafness unilateral [None]
  - Mycobacterium chelonae infection [None]
  - Chronic sinusitis [None]
